FAERS Safety Report 14801234 (Version 8)
Quarter: 2018Q4

REPORT INFORMATION
  Report Type: Spontaneous
  Country: CA (occurrence: CA)
  Receive Date: 20180424
  Receipt Date: 20181204
  Transmission Date: 20190204
  Serious: Yes (Hospitalization, Other)
  Sender: FDA-Public Use
  Company Number: CA-CELLTRION INC.-2017CA017510

PATIENT

DRUGS (10)
  1. INFLECTRA [Suspect]
     Active Substance: INFLIXIMAB-DYYB
     Dosage: 5 MG/KG, CYCLIC EVERY 8 WEEKS
     Route: 042
     Dates: start: 20180312, end: 20180312
  2. INFLECTRA [Suspect]
     Active Substance: INFLIXIMAB-DYYB
     Indication: CROHN^S DISEASE
     Dosage: 330 MG (5 MG/KG), EVERY2, 6, AND EVERY 8 WEEKS
     Route: 042
     Dates: start: 20171031
  3. INFLECTRA [Suspect]
     Active Substance: INFLIXIMAB-DYYB
     Dosage: 10 MG/KG, CYCLIC (EVERY 8 WEEKS)
     Route: 042
     Dates: start: 20180813
  4. INFLECTRA [Suspect]
     Active Substance: INFLIXIMAB-DYYB
     Dosage: 330 MG (5 MG/KG), EVERY 2, 6, AND EVERY 8 WEEKS
     Route: 042
     Dates: end: 20180312
  5. INFLECTRA [Suspect]
     Active Substance: INFLIXIMAB-DYYB
     Dosage: 10 MG/KG, CYCLIC (EVERY 8 WEEKS)
     Route: 042
     Dates: start: 20180522
  6. ALESSE 28 [Concomitant]
     Active Substance: ETHINYL ESTRADIOL\LEVONORGESTREL
     Dosage: UNK
     Route: 065
  7. METHOTREXATE. [Concomitant]
     Active Substance: METHOTREXATE
     Dosage: 15 MG, 1/WEEK TO STOP THE PRODUCTION OF ANTIBODIES
     Dates: start: 20180227
  8. INFLECTRA [Suspect]
     Active Substance: INFLIXIMAB-DYYB
     Dosage: 10 MG/KG, CYCLIC EVERY 8 WEEKS
     Route: 042
     Dates: start: 20180423, end: 20180423
  9. INFLECTRA [Suspect]
     Active Substance: INFLIXIMAB-DYYB
     Dosage: 5 MG/KG, CYCLIC EVERY 8 WEEKS
     Route: 042
     Dates: start: 20180207
  10. INFLECTRA [Suspect]
     Active Substance: INFLIXIMAB-DYYB
     Dosage: UNK UNK, CYCLIC (EVERY 6 WEEKS)
     Route: 065

REACTIONS (9)
  - Product use issue [Unknown]
  - Condition aggravated [Unknown]
  - Crohn^s disease [Unknown]
  - Drug level increased [Unknown]
  - Inappropriate schedule of product administration [Unknown]
  - Drug level below therapeutic [Unknown]
  - Product use issue [Unknown]
  - Drug specific antibody [Unknown]
  - Weight increased [Not Recovered/Not Resolved]

NARRATIVE: CASE EVENT DATE: 20180227
